FAERS Safety Report 8603912 (Version 2)
Quarter: 2012Q4

REPORT INFORMATION
  Report Type: 
  Country: US (occurrence: US)
  Receive Date: 20120607
  Receipt Date: 20120910
  Transmission Date: 20130627
  Serious: Yes (Disabling, Other)
  Sender: FDA-Public Use
  Company Number: US-TEVA-340648USA

PATIENT
  Age: 74 Year
  Sex: Female

DRUGS (2)
  1. COPAXONE [Suspect]
     Indication: MULTIPLE SCLEROSIS
     Dosage: 20 Milligram Daily;
     Route: 058
  2. BACLOFEN [Concomitant]

REACTIONS (11)
  - Injection site infection [Unknown]
  - Scar [Unknown]
  - Pharyngeal oedema [Recovering/Resolving]
  - Dysphagia [Recovered/Resolved]
  - Oropharyngeal pain [Recovering/Resolving]
  - Mass [Recovering/Resolving]
  - Activities of daily living impaired [Unknown]
  - Injection site reaction [Unknown]
  - Candidiasis [Recovering/Resolving]
  - Pain in jaw [Recovering/Resolving]
  - Hypophagia [Recovering/Resolving]
